FAERS Safety Report 5704372-7 (Version None)
Quarter: 2008Q2

REPORT INFORMATION
  Report Type: 
  Country: None (occurrence: None)
  Receive Date: 20080414
  Receipt Date: 20080404
  Transmission Date: 20081010
  Serious: Yes (Other)
  Sender: FDA-Public Use
  Company Number: A0714665A

PATIENT
  Age: 63 Year
  Sex: Female

DRUGS (8)
  1. PAROXETINE HCL [Suspect]
     Indication: DEPRESSION
     Route: 048
     Dates: start: 20070101, end: 20080121
  2. CONCERTA [Concomitant]
     Dosage: 36MG IN THE MORNING
     Route: 048
     Dates: start: 20040503
  3. ABILIFY [Concomitant]
     Dosage: 10MG PER DAY
     Route: 048
     Dates: start: 20060207, end: 20071201
  4. LAMICTAL [Concomitant]
     Route: 048
     Dates: start: 20040713, end: 20070101
  5. RISPERDAL [Concomitant]
     Route: 048
     Dates: start: 20040101, end: 20071231
  6. KLONOPIN [Concomitant]
     Dosage: 1U THREE TIMES PER DAY
     Route: 048
  7. LIPITOR [Concomitant]
     Dosage: 10MG THREE TIMES PER DAY
     Route: 048
     Dates: start: 20040101
  8. WELLBUTRIN SR [Concomitant]
     Dosage: 150MG IN THE MORNING
     Route: 048

REACTIONS (6)
  - ADVERSE EVENT [None]
  - ANXIETY [None]
  - DEPRESSION [None]
  - MOOD ALTERED [None]
  - PAIN [None]
  - SWOLLEN TONGUE [None]
